FAERS Safety Report 20652480 (Version 1)
Quarter: 2022Q1

REPORT INFORMATION
  Report Type: Spontaneous
  Country: US (occurrence: US)
  Receive Date: 20220330
  Receipt Date: 20220330
  Transmission Date: 20220423
  Serious: Yes (Other)
  Sender: FDA-Public Use
  Company Number: US-drreddys-SPO/USA/22/0148191

PATIENT
  Age: 19 Year

DRUGS (2)
  1. ACCUTANE [Suspect]
     Active Substance: ISOTRETINOIN
     Indication: Product used for unknown indication
     Dosage: RMA ISSUE DATE: 06/DECEMBER/2021 05:29:24 PM
  2. ACCUTANE [Suspect]
     Active Substance: ISOTRETINOIN
     Dosage: RMA ISSUE DATE: 21/OCTOBER/2021 03:48:57 PM, 22/DECEMBER/2021 12:44:31 PM, 26/JANUARY/2022 09:48:22

REACTIONS (1)
  - Affective disorder [Unknown]
